FAERS Safety Report 6696544-2 (Version None)
Quarter: 2010Q2

REPORT INFORMATION
  Report Type: 
  Country: None (occurrence: None)
  Receive Date: 20100426
  Receipt Date: 20100415
  Transmission Date: 20101027
  Serious: Yes (Other)
  Sender: FDA-Public Use
  Company Number: GB-JNJFOC-20100306299

PATIENT
  Age: 67 Year
  Sex: Female

DRUGS (11)
  1. ITRACONAZOLE [Suspect]
     Indication: BRONCHOPULMONARY ASPERGILLOSIS ALLERGIC
     Route: 048
  2. ITRACONAZOLE [Suspect]
     Route: 048
  3. SIMVASTATIN [Concomitant]
     Route: 065
  4. AZITHROMYCIN [Concomitant]
     Route: 065
  5. ALENDRONIC ACID [Concomitant]
     Route: 065
  6. ZOLPIDEM [Concomitant]
     Route: 065
  7. HUMULIN INSULIN [Concomitant]
     Route: 065
  8. SERETIDE [Concomitant]
     Route: 065
  9. SALBUTAMOL [Concomitant]
     Route: 065
  10. ASPIRIN [Concomitant]
     Route: 065
  11. VORICONAZOLE [Concomitant]
     Route: 065

REACTIONS (7)
  - ASTHENIA [None]
  - CONTUSION [None]
  - CUSHINGOID [None]
  - HIRSUTISM [None]
  - MUSCLE ATROPHY [None]
  - OVERWEIGHT [None]
  - TREMOR [None]
